FAERS Safety Report 13082981 (Version 2)
Quarter: 2017Q1

REPORT INFORMATION
  Report Type: Spontaneous
  Country: US (occurrence: US)
  Receive Date: 20170104
  Receipt Date: 20170114
  Transmission Date: 20170428
  Serious: Yes (Other)
  Sender: FDA-Public Use
  Company Number: US-AMGEN-USASP2016183687

PATIENT
  Age: 74 Year
  Sex: Male

DRUGS (1)
  1. REPATHA [Suspect]
     Active Substance: EVOLOCUMAB
     Indication: BLOOD CHOLESTEROL ABNORMAL
     Dosage: 140 MG, Q2WK
     Route: 065

REACTIONS (3)
  - Visual impairment [Unknown]
  - Diabetes mellitus [Unknown]
  - Drug dose omission [Unknown]

NARRATIVE: CASE EVENT DATE: 201608
